FAERS Safety Report 7889931-8 (Version None)
Quarter: 2011Q4

REPORT INFORMATION
  Report Type: 
  Country: None (occurrence: None)
  Receive Date: 20111103
  Receipt Date: 20100630
  Transmission Date: 20120403
  Serious: No
  Sender: FDA-Public Use
  Company Number: US-BAYER-201026881NA

PATIENT
  Sex: Male

DRUGS (2)
  1. AVELOX [Suspect]
     Indication: SINUSITIS
     Dosage: UNK
     Dates: start: 20100601, end: 20100601
  2. DEXAMETHASONE [Concomitant]
     Dosage: UNK

REACTIONS (3)
  - TENDONITIS [None]
  - TENDON PAIN [None]
  - ARTHRALGIA [None]
